FAERS Safety Report 6734708-X (Version None)
Quarter: 2010Q2

REPORT INFORMATION
  Report Type: 
  Country: None (occurrence: None)
  Receive Date: 20100519
  Receipt Date: 20100519
  Transmission Date: 20101027
  Serious: Yes (Life-Threatening, Hospitalization)
  Sender: FDA-Public Use
  Company Number: None

PATIENT
  Sex: Male
  Weight: 60.7 kg

DRUGS (5)
  1. ERLOTINIB 100 MG [Suspect]
     Dates: start: 20100512, end: 20100516
  2. IRINOTECAN 329 MG [Suspect]
     Dates: start: 20100512
  3. LEUCOVORIN 732 MG [Suspect]
     Dates: start: 20100512
  4. 5FU 732 MG [Suspect]
     Dates: start: 20100512
  5. 5FU 4400 MG [Suspect]
     Dates: start: 20100512

REACTIONS (6)
  - ABDOMINAL DISTENSION [None]
  - ANAEMIA [None]
  - FAILURE TO THRIVE [None]
  - HYPOPHAGIA [None]
  - PAIN [None]
  - PYREXIA [None]
